FAERS Safety Report 15714414 (Version 1)
Quarter: 2018Q4

REPORT INFORMATION
  Report Type: Report from Study
  Country: US (occurrence: US)
  Receive Date: 20181212
  Receipt Date: 20181212
  Transmission Date: 20190205
  Serious: Yes (Hospitalization)
  Sender: FDA-Public Use
  Company Number: US-BIOGEN-2018BI00669352

PATIENT
  Sex: Male

DRUGS (1)
  1. TECFIDERA [Suspect]
     Active Substance: DIMETHYL FUMARATE
     Indication: MULTIPLE SCLEROSIS
     Dosage: MAINTENCE DOSE
     Route: 048

REACTIONS (5)
  - Stasis dermatitis [Unknown]
  - Cystitis [Unknown]
  - Neuropathy peripheral [Not Recovered/Not Resolved]
  - Sepsis [Recovered/Resolved]
  - Musculoskeletal disorder [Not Recovered/Not Resolved]
